FAERS Safety Report 7380708-9 (Version None)
Quarter: 2011Q1

REPORT INFORMATION
  Report Type: 
  Country: None (occurrence: None)
  Receive Date: 20110329
  Receipt Date: 20110321
  Transmission Date: 20110831
  Serious: No
  Sender: FDA-Public Use
  Company Number: US-PFIZER INC-2011061836

PATIENT
  Sex: Female

DRUGS (2)
  1. ESTRACE [Suspect]
  2. PREMARIN [Suspect]

REACTIONS (2)
  - HORMONE LEVEL ABNORMAL [None]
  - HYPERHIDROSIS [None]
